FAERS Safety Report 6138591-5 (Version None)
Quarter: 2009Q1

REPORT INFORMATION
  Report Type: 
  Country: None (occurrence: None)
  Receive Date: 20090331
  Receipt Date: 20090319
  Transmission Date: 20090719
  Serious: Yes (Hospitalization)
  Sender: FDA-Public Use
  Company Number: US-SOLVAY-00209001618

PATIENT
  Age: 745 Month
  Sex: Male
  Weight: 105.9 kg

DRUGS (9)
  1. NEURONTIN [Concomitant]
     Indication: MOOD SWINGS
     Dosage: DAILY DOSE: 1200 MILLIGRAM(S)
     Route: 048
  2. ANDROGEL [Suspect]
     Indication: BLOOD TESTOSTERONE DECREASED
     Dosage: DAILY DOSE: 2.5 GRAM(S) VIA PUMP
     Route: 062
     Dates: start: 20090101, end: 20090101
  3. ANDROGEL [Suspect]
     Dosage: DAILY DOSE: 3.75 GRAM(S) VIA PUMP
     Route: 062
     Dates: start: 20090101, end: 20090201
  4. ANDROGEL [Suspect]
     Dosage: DAILY DOSE: 2.5 GRAM(S) VIA PUMP
     Route: 062
     Dates: start: 20090301, end: 20090315
  5. PAXIL [Concomitant]
     Indication: DEPRESSION
     Dosage: DAILY DOSE: 30 MILLIGRAM(S)
     Route: 048
  6. DIGOXIN [Concomitant]
     Indication: CARDIAC DISORDER
     Dosage: DAILY DOSE:  UNKNOWN
     Route: 048
  7. EXFORGE [Concomitant]
     Indication: HYPERTENSION
     Dosage: DAILY DOSE:  UNKNOWN
     Route: 048
  8. LIPITOR [Concomitant]
     Indication: BLOOD CHOLESTEROL INCREASED
     Dosage: DAILY DOSE:  UNKNOWN
     Route: 048
  9. PREVACID [Concomitant]
     Indication: GASTROOESOPHAGEAL REFLUX DISEASE
     Dosage: DAILY DOSE:  UNKNOWN
     Route: 048

REACTIONS (5)
  - ATRIAL FIBRILLATION [None]
  - DIZZINESS [None]
  - DYSPNOEA [None]
  - FEELING ABNORMAL [None]
  - MEMORY IMPAIRMENT [None]
